FAERS Safety Report 19845706 (Version 1)
Quarter: 2021Q3

REPORT INFORMATION
  Report Type: Report from Study
  Country: US (occurrence: US)
  Receive Date: 20210916
  Receipt Date: 20210916
  Transmission Date: 20211014
  Serious: Yes (Other)
  Sender: FDA-Public Use
  Company Number: US-EVEREST MEDICINES II (HK) LIMITED-2021-0548068

PATIENT
  Age: 26 Year
  Sex: Female

DRUGS (1)
  1. SACITUZUMAB GOVITECAN. [Suspect]
     Active Substance: SACITUZUMAB GOVITECAN
     Indication: TRIPLE NEGATIVE BREAST CANCER
     Route: 042

REACTIONS (2)
  - Alopecia [Unknown]
  - Metastases to central nervous system [Unknown]
